FAERS Safety Report 10493876 (Version 2)
Quarter: 2014Q4

REPORT INFORMATION
  Report Type: Report from Study
  Country: CA (occurrence: CA)
  Receive Date: 20141003
  Receipt Date: 20141023
  Transmission Date: 20150528
  Serious: Yes (Other)
  Sender: FDA-Public Use
  Company Number: CA-AMGEN-CANSL2014075062

PATIENT
  Age: 42 Year
  Sex: Male
  Weight: 77.1 kg

DRUGS (2)
  1. ENBREL [Suspect]
     Active Substance: ETANERCEPT
     Indication: PSORIATIC ARTHROPATHY
     Dosage: 50 MG, 2 TIMES/WK
     Route: 058
     Dates: start: 201310, end: 201409
  2. ENBREL [Suspect]
     Active Substance: ETANERCEPT
     Indication: PSORIASIS

REACTIONS (10)
  - Rash generalised [Recovering/Resolving]
  - Tooth infection [Recovered/Resolved]
  - Mouth swelling [Unknown]
  - Arthritis [Recovering/Resolving]
  - Rash pruritic [Recovering/Resolving]
  - Insomnia [Unknown]
  - Psoriasis [Unknown]
  - Body temperature increased [Unknown]
  - Feeling hot [Unknown]
  - Scratch [Unknown]

NARRATIVE: CASE EVENT DATE: 2014
